FAERS Safety Report 23689840 (Version 3)
Quarter: 2024Q3

REPORT INFORMATION
  Report Type: Report from Study
  Country: US (occurrence: US)
  Receive Date: 20240331
  Receipt Date: 20240823
  Transmission Date: 20241016
  Serious: Yes (Other)
  Sender: NOVARTIS
  Company Number: US-002147023-NVSC2024US006876

PATIENT
  Age: 40 Year
  Sex: Female

DRUGS (1)
  1. KESIMPTA [Suspect]
     Active Substance: OFATUMUMAB
     Indication: Multiple sclerosis
     Dosage: 20 MG, QMO
     Route: 058

REACTIONS (7)
  - Sepsis [Unknown]
  - Headache [Unknown]
  - Nasopharyngitis [Recovering/Resolving]
  - Malaise [Unknown]
  - Cough [Recovering/Resolving]
  - Localised infection [Unknown]
  - Abscess [Unknown]

NARRATIVE: CASE EVENT DATE: 20240319
